FAERS Safety Report 20001764 (Version 1)
Quarter: 2021Q4

REPORT INFORMATION
  Report Type: Spontaneous
  Country: US (occurrence: US)
  Receive Date: 20211027
  Receipt Date: 20211027
  Transmission Date: 20220303
  Serious: Yes (Other)
  Sender: FDA-Public Use
  Company Number: US-GLAXOSMITHKLINE-USCH2021074305

PATIENT

DRUGS (1)
  1. CHAPSTICK CLASSIC ORIGINAL [Suspect]
     Active Substance: PETROLATUM
     Indication: Chapped lips
     Dosage: UNK

REACTIONS (3)
  - Dependence [Unknown]
  - Drug ineffective [Unknown]
  - Product storage error [Unknown]
